FAERS Safety Report 8336036 (Version 2)
Quarter: 2015Q2

REPORT INFORMATION
  Report Type: Report from Study
  Country: US (occurrence: US)
  Receive Date: 20120113
  Receipt Date: 20150625
  Transmission Date: 20150821
  Serious: Yes (Death)
  Sender: FDA-Public Use
  Company Number: US-ROCHE-1027822

PATIENT
  Sex: Female

DRUGS (11)
  1. ALOXI [Concomitant]
     Active Substance: PALONOSETRON HYDROCHLORIDE
     Route: 042
  2. AVASTIN [Suspect]
     Active Substance: BEVACIZUMAB
     Route: 042
  3. ELOXATIN [Concomitant]
     Active Substance: OXALIPLATIN
     Route: 042
  4. ABRAXANE [Concomitant]
     Active Substance: PACLITAXEL
     Route: 065
  5. 5-FLUOROURACIL [Concomitant]
     Active Substance: FLUOROURACIL
     Route: 042
  6. ELOXATIN [Concomitant]
     Active Substance: OXALIPLATIN
     Route: 042
  7. AVASTIN [Suspect]
     Active Substance: BEVACIZUMAB
     Indication: PANCREATIC CARCINOMA
     Route: 042
     Dates: start: 20091210
  8. DEXAMETHAZONE [Concomitant]
     Active Substance: DEXAMETHASONE
     Route: 042
  9. XELODA [Concomitant]
     Active Substance: CAPECITABINE
     Dosage: 500 MG: 2 TAB IN AM AND 2 TAB IN PM
     Route: 048
  10. TAXOL [Concomitant]
     Active Substance: PACLITAXEL
     Route: 042
  11. LORAZEPAM. [Concomitant]
     Active Substance: LORAZEPAM
     Route: 065

REACTIONS (2)
  - Death [Fatal]
  - Off label use [Unknown]
